FAERS Safety Report 17426654 (Version 1)
Quarter: 2020Q1

REPORT INFORMATION
  Report Type: Spontaneous
  Country: CA (occurrence: CA)
  Receive Date: 20200218
  Receipt Date: 20200218
  Transmission Date: 20200409
  Serious: Yes (Other)
  Sender: FDA-Public Use
  Company Number: CA-ROCHE-2550968

PATIENT
  Age: 60 Year
  Sex: Female

DRUGS (11)
  1. ANAKINRA [Suspect]
     Active Substance: ANAKINRA
     Route: 065
  2. HUMIRA [Suspect]
     Active Substance: ADALIMUMAB
     Route: 058
  3. RITUXIMAB. [Suspect]
     Active Substance: RITUXIMAB
     Indication: PRODUCT USED FOR UNKNOWN INDICATION
     Dosage: THERAPY DURATION- 5.0 YEARS
     Route: 065
  4. REMICADE [Suspect]
     Active Substance: INFLIXIMAB
     Indication: PRODUCT USED FOR UNKNOWN INDICATION
     Route: 042
  5. ANAKINRA [Suspect]
     Active Substance: ANAKINRA
     Indication: PRODUCT USED FOR UNKNOWN INDICATION
     Dosage: THERAPY DURATION- 5.0 YEARS
     Route: 065
  6. ENBREL [Suspect]
     Active Substance: ETANERCEPT
     Indication: RHEUMATOID ARTHRITIS
     Route: 058
  7. ORENCIA [Suspect]
     Active Substance: ABATACEPT
     Indication: PRODUCT USED FOR UNKNOWN INDICATION
     Route: 042
  8. REMICADE [Suspect]
     Active Substance: INFLIXIMAB
     Dosage: THERAPY DURATION- 5.0 YEARS
     Route: 065
  9. ENBREL [Suspect]
     Active Substance: ETANERCEPT
     Dosage: THERAPY DURATION- 5.0 YEARS
     Route: 065
  10. HUMIRA [Suspect]
     Active Substance: ADALIMUMAB
     Indication: PRODUCT USED FOR UNKNOWN INDICATION
     Dosage: THERAPY DURATION- 5.0 YEARS
     Route: 065
  11. ORENCIA [Suspect]
     Active Substance: ABATACEPT
     Dosage: THERAPY DURATION- 5.0 YEARS
     Route: 065

REACTIONS (5)
  - Drug ineffective [Unknown]
  - Therapeutic product effect incomplete [Unknown]
  - Ankle operation [Unknown]
  - Musculoskeletal disorder [Unknown]
  - Rheumatoid arthritis [Unknown]
